FAERS Safety Report 25832389 (Version 1)
Quarter: 2025Q3

REPORT INFORMATION
  Report Type: Spontaneous
  Country: US (occurrence: US)
  Receive Date: 20250922
  Receipt Date: 20250922
  Transmission Date: 20251021
  Serious: No
  Sender: LUPIN
  Company Number: US-LUPIN PHARMACEUTICALS INC.-2025-08389

PATIENT
  Age: 36 Year
  Weight: 54.422 kg

DRUGS (1)
  1. MY WAY [Suspect]
     Active Substance: LEVONORGESTREL
     Indication: Post coital contraception
     Route: 065

REACTIONS (2)
  - Menstruation delayed [Unknown]
  - Inappropriate schedule of product administration [Unknown]
